FAERS Safety Report 10771837 (Version 1)
Quarter: 2015Q1

REPORT INFORMATION
  Report Type: Spontaneous
  Country: NZ (occurrence: NZ)
  Receive Date: 20150206
  Receipt Date: 20150206
  Transmission Date: 20150721
  Serious: Yes (Other)
  Sender: FDA-Public Use
  Company Number: PHHY2015NZ014271

PATIENT
  Age: 52 Year
  Sex: Female

DRUGS (1)
  1. DICLOFENAC [Suspect]
     Active Substance: DICLOFENAC
     Indication: INFLUENZA
     Dosage: 75 MG, UNK
     Route: 030

REACTIONS (3)
  - Staphylococcal infection [Recovered/Resolved]
  - Fat necrosis [Recovered/Resolved]
  - Skin necrosis [Recovered/Resolved]
